FAERS Safety Report 5847761-2 (Version None)
Quarter: 2008Q3

REPORT INFORMATION
  Report Type: 
  Country: None (occurrence: None)
  Receive Date: 20080818
  Receipt Date: 20080807
  Transmission Date: 20090109
  Serious: Yes (Hospitalization)
  Sender: FDA-Public Use
  Company Number: US-ROCHE-578134

PATIENT
  Sex: Female
  Weight: 63.5 kg

DRUGS (3)
  1. CAPECITABINE [Suspect]
     Indication: COLORECTAL CANCER
     Dosage: STRENGTH: 500 MG AND 150 MG
     Route: 048
     Dates: start: 20080602
  2. CALCIUM/VITAMIN D [Concomitant]
  3. IRON [Concomitant]

REACTIONS (3)
  - DIARRHOEA [None]
  - HIP FRACTURE [None]
  - INFECTION [None]
